FAERS Safety Report 6621672-7 (Version None)
Quarter: 2010Q1

REPORT INFORMATION
  Report Type: 
  Country: None (occurrence: None)
  Receive Date: 20100309
  Receipt Date: 20100225
  Transmission Date: 20100710
  Serious: Yes (Hospitalization, Disabling, Other)
  Sender: FDA-Public Use
  Company Number: US-WYE-H10191209

PATIENT
  Sex: Male
  Weight: 81.72 kg

DRUGS (6)
  1. PRISTIQ [Suspect]
     Indication: POST-TRAUMATIC STRESS DISORDER
     Route: 048
     Dates: start: 20090227, end: 20090101
  2. PRISTIQ [Suspect]
     Indication: DEPRESSION
  3. JANUMET [Concomitant]
     Indication: INSULIN RESISTANCE
     Dosage: 50/500  TWICE A DAY
     Dates: start: 20070904, end: 20090831
  4. ZYRTEC [Concomitant]
     Indication: HYPERSENSITIVITY
     Dosage: 1 QD PRN
     Dates: start: 20030311, end: 20090831
  5. TYLENOL-500 [Concomitant]
     Indication: HEADACHE
     Dosage: UNKNOWN
     Route: 048
     Dates: start: 20090101
  6. VALSARTAN/AMLODIPINE [Concomitant]
     Indication: HYPERTENSION
     Dosage: 10/160 1TWICE A DAY
     Dates: start: 20090202, end: 20090831

REACTIONS (10)
  - ABNORMAL DREAMS [None]
  - CRYING [None]
  - EMOTIONAL DISORDER [None]
  - GUN SHOT WOUND [None]
  - INSOMNIA [None]
  - NIGHT SWEATS [None]
  - PARAPLEGIA [None]
  - RESTLESSNESS [None]
  - SUICIDE ATTEMPT [None]
  - TREMOR [None]
